FAERS Safety Report 4842986-7 (Version None)
Quarter: 2005Q4

REPORT INFORMATION
  Report Type: 
  Country: None (occurrence: None)
  Receive Date: 20051201
  Receipt Date: 20051104
  Transmission Date: 20060501
  Serious: Yes (Other)
  Sender: FDA-Public Use
  Company Number: JP-ROCHE-424125

PATIENT
  Age: 71 Year
  Sex: Male

DRUGS (2)
  1. PEGASYS [Suspect]
     Route: 058
     Dates: start: 20050516, end: 20050829
  2. PEGASYS [Suspect]
     Route: 058
     Dates: start: 20050904, end: 20051031

REACTIONS (5)
  - DERMATITIS CONTACT [None]
  - EYE SWELLING [None]
  - EYELID OEDEMA [None]
  - FOLLICULITIS [None]
  - PRURITUS [None]
